FAERS Safety Report 15380328 (Version 1)
Quarter: 2018Q3

REPORT INFORMATION
  Report Type: Spontaneous
  Country: US (occurrence: US)
  Receive Date: 20180913
  Receipt Date: 20180913
  Transmission Date: 20181010
  Serious: Yes (Death, Other)
  Sender: FDA-Public Use
  Company Number: US-ARBOR PHARMACEUTICALS, LLC-US-2018ARB000936

PATIENT
  Age: 58 Year
  Sex: Male

DRUGS (1)
  1. AMPHETAMINE SULFATE. [Suspect]
     Active Substance: AMPHETAMINE SULFATE
     Indication: PRODUCT USED FOR UNKNOWN INDICATION
     Dosage: UNK

REACTIONS (10)
  - Acute kidney injury [Unknown]
  - Metabolic acidosis [Unknown]
  - Intestinal ischaemia [Unknown]
  - Electrocardiogram QT prolonged [Unknown]
  - Toxicity to various agents [Fatal]
  - Electrocardiogram QRS complex prolonged [Unknown]
  - Agitation [Unknown]
  - Thrombocytopenia [Unknown]
  - Anion gap [Unknown]
  - Osmolar gap [Unknown]

NARRATIVE: CASE EVENT DATE: 2016
